FAERS Safety Report 5015155-8 (Version None)
Quarter: 2006Q2

REPORT INFORMATION
  Report Type: 
  Country: None (occurrence: None)
  Receive Date: 20060530
  Receipt Date: 20060519
  Transmission Date: 20061013
  Serious: Yes (Hospitalization, Other)
  Sender: FDA-Public Use
  Company Number: 2006052327

PATIENT
  Age: 39 Year
  Sex: Female

DRUGS (1)
  1. FRESHBURST LISTERINE [Suspect]
     Indication: DENTAL DISORDER PROPHYLAXIS
     Dosage: 1 CAPFUL TWICE FOR ONE DAY, ORAL
     Route: 048
     Dates: start: 20060401, end: 20060401

REACTIONS (4)
  - COUGH [None]
  - HYPERSENSITIVITY [None]
  - LARYNGEAL OEDEMA [None]
  - THROAT IRRITATION [None]
